FAERS Safety Report 7443394-5 (Version None)
Quarter: 2011Q2

REPORT INFORMATION
  Report Type: 
  Country: None (occurrence: None)
  Receive Date: 20110428
  Receipt Date: 20110422
  Transmission Date: 20111010
  Serious: Yes (Life-Threatening, Hospitalization)
  Sender: FDA-Public Use
  Company Number: JP-ABBOTT-11P-087-0710514-00

PATIENT
  Sex: Female
  Weight: 53 kg

DRUGS (11)
  1. ATENOLOL [Interacting]
     Indication: ATRIAL FIBRILLATION
     Route: 048
     Dates: start: 20100701, end: 20100829
  2. LIPITOR [Concomitant]
     Indication: DYSLIPIDAEMIA
     Route: 048
     Dates: end: 20100828
  3. PELEX [Concomitant]
     Indication: UPPER RESPIRATORY TRACT INFLAMMATION
     Dates: start: 20100824, end: 20100829
  4. PILSICAINIDE [Interacting]
     Indication: ATRIAL FIBRILLATION
     Dosage: 50-100MG X 1-2/DAY
     Route: 048
     Dates: end: 20100828
  5. KLARICID [Suspect]
     Indication: NASOPHARYNGITIS
     Dates: start: 20100824, end: 20100829
  6. AZELNIDIPINE [Interacting]
     Indication: HYPERTENSION
     Route: 048
     Dates: start: 20100401, end: 20100829
  7. KLARICID [Interacting]
     Indication: UPPER RESPIRATORY TRACT INFLAMMATION
  8. ATENOLOL [Interacting]
     Indication: HYPERTENSION
     Route: 048
     Dates: end: 20100701
  9. OLMETEC [Concomitant]
     Indication: HYPERTENSION
     Route: 048
     Dates: start: 20100701, end: 20100829
  10. PRONON [Interacting]
     Indication: ATRIAL FIBRILLATION
     Route: 048
     Dates: end: 20100829
  11. KUBACRON [Concomitant]
     Indication: HYPERTENSION
     Route: 048
     Dates: end: 20100829

REACTIONS (3)
  - DRUG INTERACTION [None]
  - CARDIAC ARREST [None]
  - BRADYCARDIA [None]
